FAERS Safety Report 9462982 (Version 1)
Quarter: 2013Q3

REPORT INFORMATION
  Report Type: Spontaneous
  Country: FR (occurrence: FR)
  Receive Date: 20130816
  Receipt Date: 20130816
  Transmission Date: 20140515
  Serious: Yes (Hospitalization, Other)
  Sender: FDA-Public Use
  Company Number: FR-ASTRAZENECA-2013SE63375

PATIENT
  Age: 20953 Day
  Sex: Male
  Weight: 84 kg

DRUGS (6)
  1. INEXIUM [Suspect]
     Route: 048
     Dates: start: 20130710, end: 20130719
  2. AUGMENTIN [Suspect]
     Indication: PNEUMONIA ASPIRATION
     Route: 048
     Dates: start: 20130711, end: 20130716
  3. VALIUM [Concomitant]
     Indication: DEPRESSION
     Dates: start: 20130716
  4. FUNGIZONE [Concomitant]
  5. INNOHEP [Concomitant]
     Dates: start: 20130714
  6. NORSET [Concomitant]
     Dates: start: 20130717

REACTIONS (6)
  - Deep vein thrombosis [Unknown]
  - Pulmonary embolism [Unknown]
  - Pneumonia aspiration [Unknown]
  - Transaminases increased [Recovering/Resolving]
  - Alanine aminotransferase increased [Recovering/Resolving]
  - Bundle branch block right [Unknown]
